FAERS Safety Report 9507019 (Version 2)
Quarter: 2013Q3

REPORT INFORMATION
  Report Type: Spontaneous
  Country: DK (occurrence: None)
  Receive Date: 20130904
  Receipt Date: 20130919
  Transmission Date: 20140515
  Serious: Yes (Hospitalization, Other)
  Sender: FDA-Public Use
  Company Number: 2013DEPDK00007

PATIENT
  Sex: 0

DRUGS (6)
  1. DEPOCYT [Suspect]
     Indication: PRODUCT USED FOR UNKNOWN INDICATION
     Dosage: UNKNOWN,UNKNOWN,UNKNOWN
  2. DOXORUBICIN [Suspect]
     Indication: PRODUCT USED FOR UNKNOWN INDICATION
     Dates: start: 2012, end: 2012
  3. CYCLOPHOSPHAMIDE (CYCLOPHOSPHAMIDE) [Suspect]
     Indication: PRODUCT USED FOR UNKNOWN INDICATION
     Route: 042
     Dates: start: 20130423, end: 20130426
  4. ETOPOSIDE (ETOPOSIDE) [Suspect]
     Indication: PRODUCT USED FOR UNKNOWN INDICATION
     Route: 042
     Dates: start: 20120716, end: 20120718
  5. METHOTREXATE [Suspect]
     Indication: PRODUCT USED FOR UNKNOWN INDICATION
     Route: 042
     Dates: start: 20120423, end: 20120426
  6. DEXAMETHASONE (DEXAMETHASONE) [Suspect]
     Indication: PRODUCT USED FOR UNKNOWN INDICATION
     Dosage: UNKNOWN, UNKNOWN, UNKNOWN

REACTIONS (7)
  - Dysuria [None]
  - Pneumonia [None]
  - Nausea [None]
  - Pyrexia [None]
  - Cystitis [None]
  - Device related infection [None]
  - Staphylococcal sepsis [None]
